FAERS Safety Report 7418923-8 (Version None)
Quarter: 2011Q2

REPORT INFORMATION
  Report Type: 
  Country: None (occurrence: None)
  Receive Date: 20110415
  Receipt Date: 20110408
  Transmission Date: 20111010
  Serious: Yes (Hospitalization)
  Sender: FDA-Public Use
  Company Number: US-US-EMD SERONO, INC.-7046598

PATIENT
  Sex: Female

DRUGS (3)
  1. REBIF [Suspect]
     Indication: MULTIPLE SCLEROSIS
     Route: 058
     Dates: start: 20070617, end: 20101101
  2. LYRICA [Concomitant]
     Indication: MULTIPLE SCLEROSIS
  3. UNSPECIFIED MULTIPLE SCLEROSIS DRUGS [Concomitant]
     Indication: MULTIPLE SCLEROSIS
     Dates: end: 20101201

REACTIONS (3)
  - COLONIC OBSTRUCTION [None]
  - GASTROENTERITIS RADIATION [None]
  - CATHETER SITE INFECTION [None]
